FAERS Safety Report 11697781 (Version 1)
Quarter: 2015Q4

REPORT INFORMATION
  Report Type: Spontaneous
  Country: DE (occurrence: DE)
  Receive Date: 20151104
  Receipt Date: 20151104
  Transmission Date: 20160304
  Serious: Yes (Death, Life-Threatening, Hospitalization)
  Sender: FDA-Public Use
  Company Number: DE-TEVA-604682GER

PATIENT
  Age: 76 Year
  Sex: Female

DRUGS (11)
  1. PREDNISOLON [Suspect]
     Active Substance: PREDNISOLONE
     Dosage: 5 MILLIGRAM DAILY;
     Route: 048
     Dates: end: 20150515
  2. OLANZAPIN [Suspect]
     Active Substance: OLANZAPINE
     Dosage: 5 MILLIGRAM DAILY;
     Route: 048
     Dates: start: 20150512
  3. OLANZAPIN [Suspect]
     Active Substance: OLANZAPINE
     Dosage: 2.5 MILLIGRAM DAILY;
     Route: 048
     Dates: start: 20150513, end: 20150515
  4. MTX [Concomitant]
     Active Substance: METHOTREXATE SODIUM
     Dosage: 10 MILLIGRAM DAILY;
     Route: 048
     Dates: end: 20150512
  5. TOVIAZ [Concomitant]
     Active Substance: FESOTERODINE FUMARATE
     Dosage: 8 MILLIGRAM DAILY;
     Route: 048
     Dates: end: 20150515
  6. LORAZEPAM. [Concomitant]
     Active Substance: LORAZEPAM
     Dosage: 1 MG REDUCED IN 0.25MG STEPS
     Dates: start: 20150409, end: 20150513
  7. LORAZEPAM. [Concomitant]
     Active Substance: LORAZEPAM
     Dates: end: 20150510
  8. VENLAFAXIN [Suspect]
     Active Substance: VENLAFAXINE HYDROCHLORIDE
     Dosage: 75 MILLIGRAM DAILY;
     Route: 048
     Dates: start: 20150427, end: 20150504
  9. TARGIN 20 MG/10 MG [Suspect]
     Active Substance: NALOXONE HYDROCHLORIDE\OXYCODONE HYDROCHLORIDE
     Dosage: 1 DOSAGE FORMS DAILY;
     Route: 048
     Dates: start: 201410, end: 20150515
  10. VENLAFAXIN [Suspect]
     Active Substance: VENLAFAXINE HYDROCHLORIDE
     Dosage: 112.5 MILLIGRAM DAILY;
     Route: 048
     Dates: start: 20150505, end: 20150515
  11. VENLAFAXIN [Suspect]
     Active Substance: VENLAFAXINE HYDROCHLORIDE
     Dosage: 37.5 MILLIGRAM DAILY;
     Route: 048
     Dates: start: 20150421, end: 20150426

REACTIONS (3)
  - Haemorrhage [Fatal]
  - Fracture [Not Recovered/Not Resolved]
  - Generalised tonic-clonic seizure [Not Recovered/Not Resolved]

NARRATIVE: CASE EVENT DATE: 20150515
